FAERS Safety Report 6772257-3 (Version None)
Quarter: 2010Q2

REPORT INFORMATION
  Report Type: 
  Country: None (occurrence: None)
  Receive Date: 20100616
  Receipt Date: 20100114
  Transmission Date: 20101027
  Serious: No
  Sender: FDA-Public Use
  Company Number: US-ASTRAZENECA-2009SE26204

PATIENT
  Age: 81 Year
  Sex: Female

DRUGS (2)
  1. PULMICORT FLEXHALER [Suspect]
     Dosage: 2 PUFFS BID
     Route: 055
  2. PULMICORT FLEXHALER [Suspect]
     Dosage: 2 PUFFS BID
     Route: 055

REACTIONS (3)
  - CHEST DISCOMFORT [None]
  - INCORRECT DOSE ADMINISTERED [None]
  - NASOPHARYNGITIS [None]
